FAERS Safety Report 24908867 (Version 3)
Quarter: 2025Q1

REPORT INFORMATION
  Report Type: Spontaneous
  Country: LT (occurrence: LT)
  Receive Date: 20250131
  Receipt Date: 20250307
  Transmission Date: 20250409
  Serious: Yes (Hospitalization, Other)
  Sender: ROCHE
  Company Number: LT-ROCHE-10000187015

PATIENT
  Age: 70 Year
  Sex: Female

DRUGS (8)
  1. INAVOLISIB [Suspect]
     Active Substance: INAVOLISIB
     Indication: Breast cancer
     Dosage: MEDICATION DOSAGE 9MG/D
     Route: 065
     Dates: start: 20241220, end: 20241229
  2. PALBOCICLIB [Suspect]
     Active Substance: PALBOCICLIB
     Indication: Breast cancer
     Route: 065
     Dates: start: 20241220
  3. FULVESTRANT [Suspect]
     Active Substance: FULVESTRANT
     Indication: Breast cancer
     Route: 065
     Dates: start: 20241220
  4. APIXABAN [Concomitant]
     Active Substance: APIXABAN
     Indication: Hypertension
  5. RILMENIDINE [Concomitant]
     Active Substance: RILMENIDINE
     Indication: Atrial fibrillation
  6. BIZOPROLOL FUMARATE/PERINDOPRIL ARGININE [Concomitant]
     Indication: Hypertension
  7. ATORVASTATIN [Concomitant]
     Active Substance: ATORVASTATIN
     Indication: Hypercholesterolaemia
  8. LEVOTHYROXINE [Concomitant]
     Active Substance: LEVOTHYROXINE
     Indication: Hypothyroidism
     Dosage: DOSE 100 MCG

REACTIONS (2)
  - Hyperglycaemia [Recovered/Resolved]
  - Intestinal obstruction [Recovered/Resolved]

NARRATIVE: CASE EVENT DATE: 20241226
